FAERS Safety Report 6711276-X (Version None)
Quarter: 2010Q2

REPORT INFORMATION
  Report Type: 
  Country: None (occurrence: None)
  Receive Date: 20100505
  Receipt Date: 20100426
  Transmission Date: 20101027
  Serious: Yes (Other)
  Sender: FDA-Public Use
  Company Number: US-BRISTOL-MYERS SQUIBB COMPANY-15077993

PATIENT
  Age: 58 Year
  Sex: Male

DRUGS (8)
  1. BLEOMYCIN SULFATE [Suspect]
     Indication: LYMPHOMA
  2. VINCRISTINE [Suspect]
     Indication: LYMPHOMA
  3. ADRIAMYCIN PFS [Suspect]
     Indication: LYMPHOMA
  4. MUSTARGEN [Suspect]
     Indication: LYMPHOMA
  5. PROCARBAZINE [Suspect]
     Indication: LYMPHOMA
  6. PREDNISONE [Suspect]
     Indication: LYMPHOMA
  7. VINBLASTINE SULFATE [Suspect]
     Indication: LYMPHOMA
  8. DACARBAZINE [Suspect]
     Indication: LYMPHOMA

REACTIONS (1)
  - ANOSMIA [None]
